FAERS Safety Report 21442418 (Version 1)
Quarter: 2022Q4

REPORT INFORMATION
  Report Type: Spontaneous
  Country: JP (occurrence: JP)
  Receive Date: 20221011
  Receipt Date: 20221011
  Transmission Date: 20230112
  Serious: Yes (Hospitalization, Other)
  Sender: FDA-Public Use
  Company Number: JP-SAKK-01305600

PATIENT
  Age: 92 Year
  Sex: Female

DRUGS (1)
  1. LANTUS [Suspect]
     Active Substance: INSULIN GLARGINE
     Indication: Product used for unknown indication
     Dosage: BEFORE SUPPER
     Route: 058

REACTIONS (6)
  - Femur fracture [Unknown]
  - Hypoglycaemia unawareness [Unknown]
  - Altered state of consciousness [Unknown]
  - Fall [Unknown]
  - Eating disorder [Unknown]
  - Product prescribing error [Unknown]
